FAERS Safety Report 6957203-1 (Version None)
Quarter: 2010Q3

REPORT INFORMATION
  Report Type: 
  Country: None (occurrence: None)
  Receive Date: 20100831
  Receipt Date: 20100823
  Transmission Date: 20110219
  Serious: No
  Sender: FDA-Public Use
  Company Number: US-BIOGENIDEC-2010BI029505

PATIENT
  Age: 39 Year
  Sex: Female

DRUGS (1)
  1. TYSABRI [Suspect]
     Indication: MULTIPLE SCLEROSIS
     Route: 042
     Dates: start: 20100326

REACTIONS (11)
  - ABDOMINAL PAIN [None]
  - AMENORRHOEA [None]
  - ANAEMIA [None]
  - MUSCLE SPASMS [None]
  - NAUSEA [None]
  - OVARIAN CYST [None]
  - URINARY TRACT INFECTION [None]
  - UTERINE HAEMORRHAGE [None]
  - UTERINE NEOPLASM [None]
  - UTERINE POLYP [None]
  - VOMITING [None]
